FAERS Safety Report 9096183 (Version 3)
Quarter: 2013Q1

REPORT INFORMATION
  Report Type: Report from Study
  Country: DE (occurrence: DE)
  Receive Date: 20130207
  Receipt Date: 20130326
  Transmission Date: 20140127
  Serious: Yes (Death, Hospitalization)
  Sender: FDA-Public Use
  Company Number: DE-ROCHE-1188842

PATIENT
  Age: 56 Year
  Sex: Male
  Weight: 120 kg

DRUGS (12)
  1. PEG-INTERFERON ALFA 2A [Suspect]
     Indication: CHRONIC HEPATITIS C
     Route: 058
     Dates: start: 20120909
  2. PEG-INTERFERON ALFA 2A [Suspect]
     Route: 058
  3. RIBAVIRIN [Suspect]
     Indication: CHRONIC HEPATITIS C
     Route: 048
     Dates: start: 20120909
  4. BOCEPREVIR [Suspect]
     Indication: CHRONIC HEPATITIS C
     Route: 048
     Dates: start: 201210
  5. CIPRALEX [Concomitant]
     Route: 048
  6. SEROQUEL [Concomitant]
     Route: 048
  7. BELOC-ZOK [Concomitant]
     Indication: HYPERTENSION
     Route: 048
  8. VOLTAREN RESINAT [Concomitant]
     Route: 065
  9. L-THYROXIN [Concomitant]
     Route: 065
  10. PANTOZOL [Concomitant]
     Route: 065
  11. LAXOBERAL [Concomitant]
  12. MONO-EMBOLEX [Concomitant]
     Route: 065

REACTIONS (15)
  - Road traffic accident [Fatal]
  - Obstructive airways disorder [Not Recovered/Not Resolved]
  - Rib fracture [Unknown]
  - Spinal fracture [Unknown]
  - Brain oedema [Unknown]
  - Respiratory failure [Not Recovered/Not Resolved]
  - Ascites [Unknown]
  - Renal failure [Not Recovered/Not Resolved]
  - Sepsis [Unknown]
  - Brain abscess [Unknown]
  - Pleural effusion [Unknown]
  - Respiratory failure [Fatal]
  - Cardiogenic shock [Unknown]
  - Acute hepatic failure [Fatal]
  - Renal failure acute [Fatal]
